FAERS Safety Report 6714526-9 (Version None)
Quarter: 2010Q2

REPORT INFORMATION
  Report Type: 
  Country: None (occurrence: None)
  Receive Date: 20100506
  Receipt Date: 20100428
  Transmission Date: 20101027
  Serious: Yes (Other)
  Sender: FDA-Public Use
  Company Number: US-GILEAD-2010-0028875

PATIENT
  Sex: Female
  Weight: 74.002 kg

DRUGS (7)
  1. LETAIRIS [Suspect]
     Indication: PULMONARY ARTERIAL HYPERTENSION
     Route: 048
     Dates: start: 20100413, end: 20100424
  2. TYVASO [Concomitant]
  3. ADCIRCA [Concomitant]
  4. ALDACTONE [Concomitant]
  5. LASIX [Concomitant]
  6. ZOCOR [Concomitant]
  7. GLUCOPHAGE [Concomitant]

REACTIONS (4)
  - FLUSHING [None]
  - HEADACHE [None]
  - NASAL CONGESTION [None]
  - OXYGEN SATURATION DECREASED [None]
